FAERS Safety Report 23111949 (Version 2)
Quarter: 2023Q4

REPORT INFORMATION
  Report Type: Spontaneous
  Country: US (occurrence: US)
  Receive Date: 20231026
  Receipt Date: 20231207
  Transmission Date: 20240110
  Serious: Yes (Hospitalization)
  Sender: FDA-Public Use
  Company Number: US-PFIZER INC-202300348083

PATIENT
  Age: 81 Year
  Sex: Male
  Weight: 83.91 kg

DRUGS (2)
  1. VYNDAMAX [Suspect]
     Active Substance: TAFAMIDIS
     Indication: Cardiac amyloidosis
     Dosage: 61 MG, 1X/DAY
     Route: 048
     Dates: start: 202012
  2. TIKOSYN [Concomitant]
     Active Substance: DOFETILIDE
     Indication: Arrhythmia
     Dosage: 1 DF, 2X/DAY (THINKS THE DOSE IS 250)
     Route: 048
     Dates: start: 202307

REACTIONS (1)
  - Stoma hernia repair [Unknown]
